FAERS Safety Report 9267860 (Version 2)
Quarter: 2013Q2

REPORT INFORMATION
  Report Type: Report from Study
  Country: CA (occurrence: CA)
  Receive Date: 20130502
  Receipt Date: 20130513
  Transmission Date: 20140414
  Serious: Yes (Other)
  Sender: FDA-Public Use
  Company Number: CA-ABBOTT-13P-028-1082630-00

PATIENT
  Age: 70 Year
  Sex: Female
  Weight: 56 kg

DRUGS (2)
  1. HUMIRA [Suspect]
     Indication: CROHN^S DISEASE
     Route: 058
     Dates: start: 20090123
  2. HUMIRA [Suspect]
     Route: 058
     Dates: start: 20130419

REACTIONS (2)
  - Intestinal stenosis [Unknown]
  - Crohn^s disease [Not Recovered/Not Resolved]
